FAERS Safety Report 9697043 (Version 2)
Quarter: 2014Q1

REPORT INFORMATION
  Report Type: Spontaneous
  Country: US (occurrence: US)
  Receive Date: 20131120
  Receipt Date: 20140128
  Transmission Date: 20141002
  Serious: No
  Sender: FDA-Public Use
  Company Number: US-009507513-1311USA005280

PATIENT
  Sex: Male
  Weight: 132.88 kg

DRUGS (1)
  1. ASMANEX TWISTHALER [Suspect]
     Dosage: 1 PUFF, QD
     Route: 055
     Dates: start: 2007

REACTIONS (3)
  - Asthma [Recovered/Resolved]
  - Drug dose omission [Unknown]
  - Product quality issue [Unknown]
